FAERS Safety Report 7224807-0 (Version None)
Quarter: 2011Q1

REPORT INFORMATION
  Report Type: 
  Country: None (occurrence: None)
  Receive Date: 20110103
  Receipt Date: 20101222
  Transmission Date: 20110831
  Serious: Yes (Other)
  Sender: FDA-Public Use
  Company Number: 2010MA005493

PATIENT
  Age: 15 Year
  Sex: Female

DRUGS (4)
  1. GABAPENTIN [Suspect]
     Dosage: PO
     Route: 048
     Dates: start: 20101115, end: 20101121
  2. OMEPRAZOLE [Concomitant]
  3. TRAMADOL HCL [Concomitant]
  4. AMITRIPTYLINE [Concomitant]

REACTIONS (7)
  - HEADACHE [None]
  - FLUSHING [None]
  - HALLUCINATION, VISUAL [None]
  - SUICIDAL IDEATION [None]
  - RASH [None]
  - CONFUSIONAL STATE [None]
  - TREMOR [None]
